FAERS Safety Report 14849063 (Version 1)
Quarter: 2018Q2

REPORT INFORMATION
  Report Type: Report from Study
  Country: None (occurrence: DE)
  Receive Date: 20180504
  Receipt Date: 20180504
  Transmission Date: 20180711
  Serious: Yes (Death, Hospitalization)
  Sender: FDA-Public Use
  Company Number: DE-ABBVIE-18K-062-2345715-00

PATIENT
  Sex: Male

DRUGS (3)
  1. FINASTERID [Concomitant]
     Active Substance: FINASTERIDE
     Indication: PRODUCT USED FOR UNKNOWN INDICATION
  2. DUODOPA [Suspect]
     Active Substance: CARBIDOPA\LEVODOPA
     Indication: PARKINSON^S DISEASE
     Dosage: MD 1.9 ML; CRD 3.6 ML/ H; CRN 1.7 ML/ H; ED 1.9 ML
     Route: 050
     Dates: start: 20071030
  3. TAMSULOSIN [Concomitant]
     Active Substance: TAMSULOSIN
     Indication: PRODUCT USED FOR UNKNOWN INDICATION

REACTIONS (3)
  - Pancreatic carcinoma [Fatal]
  - Stoma site discharge [Not Recovered/Not Resolved]
  - Metastases to liver [Fatal]
